FAERS Safety Report 4590294-4 (Version None)
Quarter: 2005Q1

REPORT INFORMATION
  Report Type: 
  Country: None (occurrence: None)
  Receive Date: 20050217
  Receipt Date: 20050204
  Transmission Date: 20050727
  Serious: Yes (Hospitalization)
  Sender: FDA-Public Use
  Company Number: 2005AP01009

PATIENT
  Age: 54 Year
  Sex: Female
  Weight: 70 kg

DRUGS (5)
  1. BUPIVACAINE HYDROCHLORIDE [Suspect]
     Indication: SENSORY DISTURBANCE
  2. FENTANYL CITRATE [Suspect]
     Indication: SENSORY DISTURBANCE
     Dosage: 15 UG DAILY
  3. PROPOFOL [Concomitant]
  4. MIDAZOLAM [Concomitant]
  5. CEPHALOTHIN [Concomitant]

REACTIONS (1)
  - CAUDA EQUINA SYNDROME [None]
